FAERS Safety Report 8223850-2 (Version None)
Quarter: 2012Q1

REPORT INFORMATION
  Report Type: 
  Country: None (occurrence: None)
  Receive Date: 20120312
  Receipt Date: 20111020
  Transmission Date: 20120608
  Serious: Yes (Hospitalization, Other)
  Sender: FDA-Public Use
  Company Number: 2011SP044566

PATIENT
  Sex: Male

DRUGS (6)
  1. VICTRELIS [Suspect]
     Indication: HEPATITIS C
     Dates: start: 20110910
  2. RIBAVIRIN [Suspect]
     Indication: HEPATITIS C
     Dates: start: 19980101, end: 19981201
  3. RIBAVIRIN [Suspect]
     Indication: HEPATITIS C
     Dates: start: 20110910, end: 20111225
  4. RIBAVIRIN [Suspect]
     Indication: HEPATITIS C
     Dates: start: 20020101
  5. INTERFERON [Suspect]
     Indication: HEPATITIS C
     Dosage: TIW
     Dates: start: 20020101
  6. PEG-INTRON [Suspect]
     Indication: HEPATITIS C
     Dates: start: 20110910, end: 20111225

REACTIONS (14)
  - THROMBOSIS [None]
  - CEREBROVASCULAR ACCIDENT [None]
  - BLOOD COUNT ABNORMAL [None]
  - HEMIPLEGIA [None]
  - WEIGHT DECREASED [None]
  - BLOOD SODIUM DECREASED [None]
  - HEPATITIS C RNA INCREASED [None]
  - DRUG INEFFECTIVE [None]
  - VOMITING [None]
  - DEHYDRATION [None]
  - DYSPNOEA [None]
  - COMA HEPATIC [None]
  - ANAEMIA [None]
  - LOSS OF CONSCIOUSNESS [None]
